FAERS Safety Report 9931867 (Version 1)
Quarter: 2014Q1

REPORT INFORMATION
  Report Type: Spontaneous
  Country: US (occurrence: None)
  Receive Date: 20140227
  Receipt Date: 20140227
  Transmission Date: 20141002
  Serious: Yes (Life-Threatening, Hospitalization)
  Sender: FDA-Public Use
  Company Number: None

PATIENT
  Age: 70 Year
  Sex: Female
  Weight: 61.24 kg

DRUGS (8)
  1. COPAXONE [Suspect]
     Indication: MULTIPLE SCLEROSIS
     Dosage: 20MG/1ML 30 INJECTIONS ONCE DAILY
     Dates: start: 20140204, end: 20140204
  2. LEVOTHYROXINE [Concomitant]
  3. FLONASE [Concomitant]
  4. AZO CRANBERRY [Concomitant]
  5. ASPIRIN [Concomitant]
  6. CITRACAL [Concomitant]
  7. MULTIVITAMIN [Concomitant]
  8. VITAMIN D3 [Concomitant]

REACTIONS (13)
  - Headache [None]
  - Feeling abnormal [None]
  - Tremor [None]
  - Nausea [None]
  - Diarrhoea [None]
  - Dizziness [None]
  - Vision blurred [None]
  - Throat irritation [None]
  - Influenza like illness [None]
  - Lip swelling [None]
  - Eyelid oedema [None]
  - Pharyngeal oedema [None]
  - Swelling face [None]
